FAERS Safety Report 10167849 (Version 2)
Quarter: 2014Q2

REPORT INFORMATION
  Report Type: Report from Study
  Country: GB (occurrence: GB)
  Receive Date: 20140512
  Receipt Date: 20140512
  Transmission Date: 20141212
  Serious: Yes (Death)
  Sender: FDA-Public Use
  Company Number: GB-ABBVIE-14P-167-1231731-00

PATIENT
  Age: 72 Year
  Sex: Male

DRUGS (1)
  1. CREON [Suspect]
     Indication: PANCREATIC CARCINOMA
     Dates: start: 20131026

REACTIONS (6)
  - Pancreatic carcinoma [Fatal]
  - Cerebrovascular accident [Fatal]
  - Abdominal pain upper [Recovered/Resolved]
  - Therapy cessation [Recovered/Resolved]
  - Constipation [Unknown]
  - Pain [Unknown]
